FAERS Safety Report 12183482 (Version 1)
Quarter: 2016Q1

REPORT INFORMATION
  Report Type: Spontaneous
  Country: CA (occurrence: CA)
  Receive Date: 20160316
  Receipt Date: 20160316
  Transmission Date: 20160526
  Serious: Yes (Other)
  Sender: FDA-Public Use
  Company Number: CA-TEVA-643790ACC

PATIENT
  Age: 23 Year
  Sex: Female
  Weight: 73 kg

DRUGS (6)
  1. LAMICTAL [Concomitant]
     Active Substance: LAMOTRIGINE
  2. SEROQUEL XR [Concomitant]
     Active Substance: QUETIAPINE FUMARATE
  3. TYLENOL WITH CODEINE NO. 2 - TAB [Concomitant]
  4. RIZATRIPTAN. [Suspect]
     Active Substance: RIZATRIPTAN
     Indication: MIGRAINE
     Route: 048
  5. RIZATRIPTAN. [Suspect]
     Active Substance: RIZATRIPTAN
     Route: 048
  6. VITAMIN D [Concomitant]
     Active Substance: CHOLECALCIFEROL

REACTIONS (10)
  - Hypoaesthesia [Unknown]
  - Muscular weakness [Unknown]
  - Paraesthesia [Unknown]
  - Pollakiuria [Unknown]
  - Head discomfort [Unknown]
  - Somnolence [Unknown]
  - Fatigue [Unknown]
  - Chest discomfort [Unknown]
  - Dizziness [Unknown]
  - Dyspepsia [Unknown]
